FAERS Safety Report 14990636 (Version 1)
Quarter: 2018Q2

REPORT INFORMATION
  Report Type: Spontaneous
  Country: US (occurrence: US)
  Receive Date: 20180608
  Receipt Date: 20180608
  Transmission Date: 20180711
  Serious: No
  Sender: FDA-Public Use
  Company Number: US-ELI_LILLY_AND_COMPANY-US201806002961

PATIENT
  Sex: Male

DRUGS (1)
  1. HUMATROPE [Suspect]
     Active Substance: SOMATROPIN
     Indication: PRODUCT USED FOR UNKNOWN INDICATION
     Dosage: UNK, UNKNOWN
     Route: 065

REACTIONS (8)
  - Pain in extremity [Unknown]
  - Dizziness [Unknown]
  - Muscle tightness [Unknown]
  - Asthenia [Unknown]
  - Dyspnoea [Unknown]
  - Movement disorder [Unknown]
  - Pallor [Unknown]
  - Pain [Unknown]
